FAERS Safety Report 20492914 (Version 1)
Quarter: 2022Q1

REPORT INFORMATION
  Report Type: Spontaneous
  Country: US (occurrence: US)
  Receive Date: 20220219
  Receipt Date: 20220219
  Transmission Date: 20220423
  Serious: Yes (Hospitalization, Other)
  Sender: FDA-Public Use
  Company Number: US-MLMSERVICE-20220202-3347352-1

PATIENT
  Age: 71 Year
  Sex: Female

DRUGS (4)
  1. LIDOCAINE [Suspect]
     Active Substance: LIDOCAINE
     Indication: Spinal anaesthesia
     Dosage: 6 MILLILITER IN TOTAL (FORMULATION: INJECTION) (1.5 ML L2-L4 MEDIAL BRANCH BLOCKS (VERTEBRAL LEVEL L
     Route: 008
  2. PREDNISONE [Suspect]
     Active Substance: PREDNISONE
     Indication: Rheumatoid arthritis
     Dosage: 20 MILLIGRAM, OD
     Route: 048
  3. HYDROXYCHLOROQUINE [Suspect]
     Active Substance: HYDROXYCHLOROQUINE
     Indication: Rheumatoid arthritis
     Dosage: 200 MILLIGRAM, OD
     Route: 048
  4. ACETAMINOPHEN\OXYCODONE HYDROCHLORIDE [Concomitant]
     Active Substance: ACETAMINOPHEN\OXYCODONE HYDROCHLORIDE
     Indication: Back pain
     Dosage: 1 DOSAGE FORM, BID
     Route: 065

REACTIONS (2)
  - Lumbar spinal stenosis [Recovered/Resolved]
  - Extradural abscess [Recovered/Resolved]
